FAERS Safety Report 19490860 (Version 3)
Quarter: 2024Q4

REPORT INFORMATION
  Report Type: Report from Study
  Country: US (occurrence: US)
  Receive Date: 20210705
  Receipt Date: 20241204
  Transmission Date: 20250115
  Serious: Yes (Other)
  Sender: SANOFI AVENTIS
  Company Number: US-SA-2021SA214353

PATIENT
  Age: 66 Year
  Sex: Female

DRUGS (8)
  1. DUPILUMAB [Suspect]
     Active Substance: DUPILUMAB
     Indication: Dermatitis atopic
     Dosage: SINCE 1.2 MONTHS
  2. ADALIMUMAB [Suspect]
     Active Substance: ADALIMUMAB
     Indication: Dermatitis atopic
  3. CORTICOSTEROID NOS [Concomitant]
     Active Substance: CORTICOSTEROID NOS
     Indication: Dermatitis atopic
     Dosage: TOPICAL
  4. CORTICOSTEROID NOS [Concomitant]
     Active Substance: CORTICOSTEROID NOS
     Dosage: SYSTEMIC
  5. DAPSONE [Concomitant]
     Active Substance: DAPSONE
     Indication: Dermatitis atopic
  6. GABAPENTIN [Concomitant]
     Active Substance: GABAPENTIN
     Indication: Dermatitis atopic
  7. METHOTREXATE [Concomitant]
     Active Substance: METHOTREXATE
     Indication: Dermatitis atopic
  8. MYCOPHENOLATE MOFETIL [Concomitant]
     Active Substance: MYCOPHENOLATE MOFETIL
     Indication: Dermatitis atopic

REACTIONS (2)
  - Cutaneous T-cell lymphoma stage II [Not Recovered/Not Resolved]
  - Lymphocytic infiltration [Not Recovered/Not Resolved]
